FAERS Safety Report 4979726-7 (Version None)
Quarter: 2006Q2

REPORT INFORMATION
  Report Type: 
  Country: None (occurrence: None)
  Receive Date: 20060418
  Receipt Date: 20060405
  Transmission Date: 20061013
  Serious: Yes (Hospitalization)
  Sender: FDA-Public Use
  Company Number: 2006048462

PATIENT
  Sex: Male

DRUGS (2)
  1. REVATIO [Suspect]
     Indication: PULMONARY HYPERTENSION
     Dosage: 2 MG/KG (1 D), ORAL
     Route: 048
     Dates: start: 20020101
  2. ALL OTHER THERAPEUTIC PRODUCTS (ALL OTHER THERAPEUTIC PRODUCTS [Concomitant]

REACTIONS (2)
  - PULMONARY ARTERY THERAPEUTIC PROCEDURE [None]
  - WEIGHT BELOW NORMAL [None]
